FAERS Safety Report 8290930-5 (Version None)
Quarter: 2012Q2

REPORT INFORMATION
  Report Type: 
  Country: None (occurrence: None)
  Receive Date: 20120417
  Receipt Date: 20110325
  Transmission Date: 20120825
  Serious: Yes (Other)
  Sender: FDA-Public Use
  Company Number: US-ASTRAZENECA-2011SE16998

PATIENT
  Age: 63 Year
  Sex: Male

DRUGS (25)
  1. NEXIUM [Suspect]
     Indication: GASTROOESOPHAGEAL REFLUX DISEASE
     Route: 048
  2. ZABETA [Concomitant]
  3. COMBIGAN [Concomitant]
  4. ADVAIR DISKUS 100/50 [Concomitant]
  5. ACTOS [Concomitant]
  6. FLOMAX [Concomitant]
  7. ZOCOR [Concomitant]
  8. METFORMIN HCL [Concomitant]
  9. STEROIDS [Concomitant]
  10. NITROSTAT [Concomitant]
  11. MIRALAX [Concomitant]
  12. MYSOLINE [Concomitant]
  13. COUMADIN [Concomitant]
  14. PROSCAR [Concomitant]
  15. PERCOCET [Concomitant]
  16. DEPAKOTE [Concomitant]
  17. BENTYL [Concomitant]
  18. MARIJUANA [Concomitant]
  19. VITAMIN D [Concomitant]
  20. ALBUTEROL [Concomitant]
  21. PROZAC [Concomitant]
  22. ZETIA [Concomitant]
  23. SPIRIVA [Concomitant]
  24. BACTROBAN [Concomitant]
  25. ALBUTEROL SULFATE [Concomitant]

REACTIONS (1)
  - LOWER LIMB FRACTURE [None]
